FAERS Safety Report 6261717-X (Version None)
Quarter: 2009Q3

REPORT INFORMATION
  Report Type: 
  Country: None (occurrence: None)
  Receive Date: 20090707
  Receipt Date: 20090707
  Transmission Date: 20100115
  Serious: Yes (Other)
  Sender: FDA-Public Use
  Company Number: None

PATIENT
  Age: 62 Year
  Sex: Male
  Weight: 106.5953 kg

DRUGS (2)
  1. CIPROFLOXACIN [Suspect]
     Indication: ARTHROPATHY
     Dosage: DAILY
     Dates: start: 20080930, end: 20081020
  2. CIPROFLOXACIN [Suspect]
     Indication: INFECTION
     Dosage: DAILY
     Dates: start: 20080930, end: 20081020

REACTIONS (1)
  - TENDON RUPTURE [None]
